FAERS Safety Report 6469179-4 (Version None)
Quarter: 2009Q4

REPORT INFORMATION
  Report Type: 
  Country: None (occurrence: None)
  Receive Date: 20091203
  Receipt Date: 20071008
  Transmission Date: 20100525
  Serious: Yes (Hospitalization)
  Sender: FDA-Public Use
  Company Number: BE-ELI_LILLY_AND_COMPANY-BE200703004805

PATIENT
  Sex: Female

DRUGS (9)
  1. FORTEO [Suspect]
     Indication: OSTEOPOROSIS
     Dosage: 20 UG, DAILY (1/D)
     Route: 058
     Dates: start: 20060912
  2. LIPITOR [Concomitant]
     Dosage: UNK, UNKNOWN
     Route: 065
  3. SPIRIVA [Concomitant]
     Dosage: UNK, UNKNOWN
     Route: 065
  4. COVERSYL [Concomitant]
     Dosage: UNK, UNKNOWN
     Route: 065
  5. DITROPAN /00538902/ [Concomitant]
     Dosage: UNK, UNKNOWN
     Route: 065
  6. SERLAIN [Concomitant]
     Dosage: UNK, UNKNOWN
     Route: 065
  7. CARDIOASPIRINE [Concomitant]
     Dosage: UNK, UNKNOWN
     Route: 065
  8. DILTIAZEM HCL [Concomitant]
     Dosage: UNK, UNKNOWN
     Route: 065
  9. CALCIUM [Concomitant]
     Dosage: UNK, UNKNOWN
     Route: 065

REACTIONS (1)
  - ANXIETY [None]
